FAERS Safety Report 6198194-3 (Version None)
Quarter: 2009Q2

REPORT INFORMATION
  Report Type: 
  Country: None (occurrence: None)
  Receive Date: 20090521
  Receipt Date: 20090514
  Transmission Date: 20091009
  Serious: Yes (Other)
  Sender: FDA-Public Use
  Company Number: ES-MERCK-0905ESP00034

PATIENT
  Age: 55 Year
  Sex: Male

DRUGS (1)
  1. ISENTRESS [Suspect]
     Indication: HIV INFECTION
     Route: 048
     Dates: start: 20090323, end: 20090412

REACTIONS (2)
  - DIARRHOEA [None]
  - WEIGHT DECREASED [None]
